FAERS Safety Report 4983255-4 (Version None)
Quarter: 2006Q2

REPORT INFORMATION
  Report Type: 
  Country: None (occurrence: None)
  Receive Date: 20060419
  Receipt Date: 20060407
  Transmission Date: 20061013
  Serious: Yes (Death)
  Sender: FDA-Public Use
  Company Number: 2006JP001012

PATIENT
  Age: 54 Year
  Sex: Male

DRUGS (1)
  1. PROGRAF [Suspect]
     Indication: BONE MARROW TRANSPLANT
     Dosage: 0.03 MG/KG, UNKNOWN/D, IV DRIP
     Route: 041
     Dates: start: 20040401

REACTIONS (1)
  - GRAFT VERSUS HOST DISEASE [None]
